FAERS Safety Report 6038801-9 (Version None)
Quarter: 2009Q1

REPORT INFORMATION
  Report Type: 
  Country: None (occurrence: None)
  Receive Date: 20090115
  Receipt Date: 20080731
  Transmission Date: 20090719
  Serious: No
  Sender: FDA-Public Use
  Company Number: US-ABBOTT-08P-163-0467211-00

PATIENT
  Sex: Female

DRUGS (3)
  1. ADVICOR [Suspect]
     Indication: BLOOD CHOLESTEROL ABNORMAL
     Dosage: 500/20 MG AT BEDTIME
     Route: 048
     Dates: start: 20051001, end: 20080615
  2. BLOOD THINNER [Concomitant]
     Indication: DRUG USE FOR UNKNOWN INDICATION
  3. EZETIMIBE [Concomitant]
     Indication: DRUG USE FOR UNKNOWN INDICATION

REACTIONS (3)
  - BURNING SENSATION [None]
  - FEELING HOT [None]
  - FLUSHING [None]
